FAERS Safety Report 17806373 (Version 2)
Quarter: 2020Q2

REPORT INFORMATION
  Report Type: Report from Study
  Country: US (occurrence: US)
  Receive Date: 20200520
  Receipt Date: 20200526
  Transmission Date: 20200714
  Serious: Yes (Other)
  Sender: FDA-Public Use
  Company Number: US-TEVA-2020-US-1238019

PATIENT
  Age: 28 Year
  Sex: Female

DRUGS (3)
  1. CLARAVIS [Suspect]
     Active Substance: ISOTRETINOIN
     Dosage: AVERAGE DAILY DOSE 60 MG
     Route: 065
     Dates: start: 20200301
  2. NUVARING [Concomitant]
     Active Substance: ETHINYL ESTRADIOL\ETONOGESTREL
     Dates: end: 20200419
  3. CLARAVIS [Suspect]
     Active Substance: ISOTRETINOIN
     Dosage: QD ALTERNATING WITH BID (40/80)
     Route: 065
     Dates: start: 20200226

REACTIONS (6)
  - Self-medication [Unknown]
  - Human chorionic gonadotropin decreased [Recovered/Resolved]
  - Unintended pregnancy [Unknown]
  - Abortion spontaneous [Unknown]
  - Vaginal haemorrhage [Unknown]
  - Blood triglycerides increased [Recovered/Resolved]

NARRATIVE: CASE EVENT DATE: 20200420
